FAERS Safety Report 22115008 (Version 3)
Quarter: 2023Q1

REPORT INFORMATION
  Report Type: Spontaneous
  Country: IT (occurrence: IT)
  Receive Date: 20230320
  Receipt Date: 20230328
  Transmission Date: 20230418
  Serious: Yes (Hospitalization)
  Sender: FDA-Public Use
  Company Number: None

PATIENT

DRUGS (3)
  1. VOLTAREN [Suspect]
     Active Substance: DICLOFENAC SODIUM
     Indication: Back pain
     Dosage: UNK
     Route: 030
     Dates: start: 20230309, end: 20230313
  2. LEVACECARNINE HYDROCHLORIDE [Suspect]
     Active Substance: LEVACECARNINE HYDROCHLORIDE
     Indication: Back pain
     Dosage: 2 DF, QD (2FL/DAY ASSOCIATED WITH VOLTAREN)
     Route: 030
     Dates: start: 20230309, end: 20230313
  3. XANAX [Concomitant]
     Active Substance: ALPRAZOLAM
     Indication: Product used for unknown indication
     Dosage: UNK
     Route: 065

REACTIONS (2)
  - Malaise [Recovering/Resolving]
  - Face oedema [Recovering/Resolving]

NARRATIVE: CASE EVENT DATE: 20230312
